FAERS Safety Report 5047457-3 (Version None)
Quarter: 2006Q3

REPORT INFORMATION
  Report Type: 
  Country: None (occurrence: None)
  Receive Date: 20060710
  Receipt Date: 20060710
  Transmission Date: 20061208
  Serious: Yes (Other)
  Sender: FDA-Public Use
  Company Number: None

PATIENT

DRUGS (1)
  1. BYETTA [Suspect]
     Dosage: SQ
     Route: 058

REACTIONS (1)
  - MEDICATION ERROR [None]
